FAERS Safety Report 6877440-4 (Version None)
Quarter: 2010Q3

REPORT INFORMATION
  Report Type: 
  Country: None (occurrence: None)
  Receive Date: 20100727
  Receipt Date: 20091216
  Transmission Date: 20110219
  Serious: No
  Sender: FDA-Public Use
  Company Number: US-ABBOTT-09P-163-0615959-00

PATIENT
  Sex: Female
  Weight: 49.032 kg

DRUGS (3)
  1. SYNTHROID [Suspect]
     Indication: HYPOTHYROIDISM
     Dosage: UNKNOWN LOT NUMBERS, NOT ON PRESCIPTION BOTTLES.
     Route: 048
  2. SYNTHROID [Suspect]
     Dosage: TAKING 1.5 TABS
     Route: 048
  3. SYNTHROID [Suspect]
     Dosage: TOOK 1.5 TABLETS DAILY
     Route: 048

REACTIONS (5)
  - BLOOD THYROID STIMULATING HORMONE DECREASED [None]
  - BLOOD THYROID STIMULATING HORMONE INCREASED [None]
  - FATIGUE [None]
  - FEELING JITTERY [None]
  - SLEEP DISORDER [None]
